FAERS Safety Report 21311449 (Version 1)
Quarter: 2022Q3

REPORT INFORMATION
  Report Type: Spontaneous
  Country: US (occurrence: None)
  Receive Date: 20220908
  Receipt Date: 20220908
  Transmission Date: 20221027
  Serious: No
  Sender: FDA-Public Use
  Company Number: None

PATIENT
  Sex: Male

DRUGS (1)
  1. HUMIRA [Suspect]
     Active Substance: ADALIMUMAB
     Indication: Crohn^s disease
     Dosage: FREQUENCY : EVERY OTHER WEEK; SUBCUTANEOUS ?
     Route: 058
     Dates: start: 201510

REACTIONS (4)
  - Condition aggravated [None]
  - Abdominal symptom [None]
  - Gastrointestinal disorder [None]
  - Drug ineffective [None]
